FAERS Safety Report 12574964 (Version 1)
Quarter: 2016Q3

REPORT INFORMATION
  Report Type: Spontaneous
  Country: CH (occurrence: CH)
  Receive Date: 20160720
  Receipt Date: 20160720
  Transmission Date: 20161109
  Serious: Yes (Hospitalization)
  Sender: FDA-Public Use
  Company Number: CH-TEVA-675425ISR

PATIENT
  Age: 47 Year
  Sex: Male
  Weight: 90 kg

DRUGS (4)
  1. PANTOZOL [Concomitant]
     Active Substance: PANTOPRAZOLE SODIUM
     Dosage: 40 MILLIGRAM DAILY; LONG-TERM THERAPY, WAS REPLACED WITH ESOMEPRAZOLE ON 15-JUN-2016
     Route: 048
     Dates: end: 20160614
  2. COSENTYX [Suspect]
     Active Substance: SECUKINUMAB
     Indication: SPONDYLITIS
     Dosage: IN TOTAL, 2 DOSES WERE ADMINISTERED, ONE ON 31-MAY-2016 AND ONE ON 07-JUN-2016
     Route: 058
     Dates: start: 20160531, end: 20160607
  3. IRFEN [Suspect]
     Active Substance: IBUPROFEN
     Indication: BACK PAIN
     Dosage: 1600 MILLIGRAM DAILY; USED DAILY FOR ABOUT 4 MONTHS, PREVIOUSLY HE HAD USED OTHER NSAIDS
     Route: 048
     Dates: start: 201602, end: 20160614
  4. CRESTOR [Suspect]
     Active Substance: ROSUVASTATIN CALCIUM
     Indication: HYPERCHOLESTEROLAEMIA
     Dosage: 20 MILLIGRAM DAILY; USED SINCE YEARS
     Route: 048

REACTIONS (4)
  - Portal vein thrombosis [Unknown]
  - Off label use [Recovered/Resolved]
  - Pancreatitis necrotising [Recovering/Resolving]
  - Splenic thrombosis [Unknown]

NARRATIVE: CASE EVENT DATE: 20160531
